FAERS Safety Report 4618973-0 (Version None)
Quarter: 2005Q1

REPORT INFORMATION
  Report Type: 
  Country: None (occurrence: None)
  Receive Date: 20050325
  Receipt Date: 20050316
  Transmission Date: 20050727
  Serious: Yes (Other)
  Sender: FDA-Public Use
  Company Number: US-BRISTOL-MYERS SQUIBB COMPANY-12901443

PATIENT
  Age: 49 Year
  Sex: Male
  Weight: 75 kg

DRUGS (1)
  1. SERZONE [Suspect]
     Indication: DEPRESSION
     Dosage: 1995 AT 100MG TWICE DAILY AND IN 1998 AT 150MG TWICE DAILY
     Route: 048
     Dates: start: 19950101, end: 19980101

REACTIONS (26)
  - ABDOMINAL DISTENSION [None]
  - ABDOMINAL PAIN [None]
  - AGEUSIA [None]
  - APPETITE DISORDER [None]
  - ASTHENIA [None]
  - COGNITIVE DETERIORATION [None]
  - CONFUSIONAL STATE [None]
  - DENTAL CARIES [None]
  - DIABETES MELLITUS [None]
  - DIZZINESS [None]
  - DRUG INEFFECTIVE [None]
  - ERECTILE DYSFUNCTION [None]
  - FATIGUE [None]
  - HEPATIC STEATOSIS [None]
  - HYPOAESTHESIA [None]
  - MUSCLE ATROPHY [None]
  - MYOCARDIAL INFARCTION [None]
  - NAUSEA [None]
  - POLLAKIURIA [None]
  - PREMATURE AGEING [None]
  - RASH [None]
  - SLEEP DISORDER [None]
  - THIRST [None]
  - TOOTH FRACTURE [None]
  - VISUAL DISTURBANCE [None]
  - WEIGHT FLUCTUATION [None]
